FAERS Safety Report 18687273 (Version 1)
Quarter: 2020Q4

REPORT INFORMATION
  Report Type: Spontaneous
  Country: NL (occurrence: NL)
  Receive Date: 20201231
  Receipt Date: 20201231
  Transmission Date: 20210114
  Serious: Yes (Hospitalization)
  Sender: FDA-Public Use
  Company Number: NL-ACCORD-212860

PATIENT
  Age: 75 Year
  Sex: Female
  Weight: 64 kg

DRUGS (4)
  1. AMLODIPINE [Suspect]
     Active Substance: AMLODIPINE BESYLATE
     Indication: PRODUCT USED FOR UNKNOWN INDICATION
     Dosage: STRENGTH:5MG
  2. D-CURA [Suspect]
     Active Substance: CHOLECALCIFEROL
     Indication: PRODUCT USED FOR UNKNOWN INDICATION
     Dosage: STRENGTH:25000 IU
     Dates: start: 20201101
  3. SIMVASTATIN. [Concomitant]
     Active Substance: SIMVASTATIN
     Dosage: STRENGTH:20MG
  4. TELMISARTAN GLENMARK [Suspect]
     Active Substance: TELMISARTAN
     Indication: HYPERTENSION
     Dosage: STRENGTH:40 MG,1 X PER DAY 1 PIECE
     Dates: start: 201902, end: 20201214

REACTIONS (2)
  - Pharyngeal oedema [Recovering/Resolving]
  - Angioedema [Recovering/Resolving]

NARRATIVE: CASE EVENT DATE: 20201214
